FAERS Safety Report 13189782 (Version 2)
Quarter: 2017Q1

REPORT INFORMATION
  Report Type: Spontaneous
  Country: BR (occurrence: BR)
  Receive Date: 20170206
  Receipt Date: 20170213
  Transmission Date: 20170428
  Serious: Yes (Death)
  Sender: FDA-Public Use
  Company Number: BR-ELI_LILLY_AND_COMPANY-BR201702000794

PATIENT
  Age: 84 Year
  Sex: Female

DRUGS (1)
  1. FORTEO [Suspect]
     Active Substance: TERIPARATIDE
     Indication: OSTEOPOROSIS
     Dosage: UNK, UNKNOWN
     Route: 065
     Dates: start: 2005, end: 2008

REACTIONS (7)
  - Incorrect drug administration duration [Unknown]
  - Thrombocytopenia [Fatal]
  - Joint dislocation postoperative [Fatal]
  - Drug ineffective [Unknown]
  - Pathological fracture [Fatal]
  - Shock haemorrhagic [Fatal]
  - Lower limb fracture [Unknown]

NARRATIVE: CASE EVENT DATE: 2005
